FAERS Safety Report 5114972-3 (Version None)
Quarter: 2006Q3

REPORT INFORMATION
  Report Type: 
  Country: None (occurrence: None)
  Receive Date: 20060922
  Receipt Date: 20060911
  Transmission Date: 20061208
  Serious: Yes (Life-Threatening, Hospitalization)
  Sender: FDA-Public Use
  Company Number: 06H-163-0310226-00

PATIENT
  Age: 54 Year
  Sex: Female

DRUGS (3)
  1. LIDOCAINE [Suspect]
     Indication: COUGH
     Dosage: 5 CC, ENDOTRACHEAL
     Route: 007
     Dates: start: 20060830
  2. LIDOCAINE [Suspect]
     Indication: PROPHYLAXIS
     Dosage: 5 CC, ENDOTRACHEAL
     Route: 007
     Dates: start: 20060830
  3. DECADRON [Concomitant]

REACTIONS (3)
  - DEVICE MALFUNCTION [None]
  - OBSTRUCTIVE AIRWAYS DISORDER [None]
  - PROCEDURAL COMPLICATION [None]
